FAERS Safety Report 8833990 (Version 1)
Quarter: 2012Q4

REPORT INFORMATION
  Report Type: 
  Country: US (occurrence: US)
  Receive Date: 20121010
  Receipt Date: 20121010
  Transmission Date: 20130627
  Serious: Yes (Hospitalization)
  Sender: FDA-Public Use
  Company Number: US-ELI_LILLY_AND_COMPANY-US201209008325

PATIENT
  Age: 52 Year
  Sex: Female

DRUGS (5)
  1. CYMBALTA [Suspect]
     Indication: DEPRESSION
     Dosage: 60 mg, qd
     Dates: start: 2004, end: 2006
  2. CYMBALTA [Suspect]
     Dosage: 60 mg, qd
     Dates: start: 2006
  3. LORAZEPAM [Concomitant]
  4. SYNTHROID [Concomitant]
  5. ANTIHYPERTENSIVES [Concomitant]
     Indication: HYPERTENSION

REACTIONS (3)
  - Drug withdrawal syndrome [Recovered/Resolved]
  - Cerebrovascular accident [Unknown]
  - Carotid artery occlusion [Unknown]
